FAERS Safety Report 7327918-4 (Version None)
Quarter: 2011Q1

REPORT INFORMATION
  Report Type: 
  Country: None (occurrence: None)
  Receive Date: 20110224
  Receipt Date: 20110224
  Transmission Date: 20110831
  Serious: No
  Sender: FDA-Public Use
  Company Number: None

PATIENT
  Sex: Female

DRUGS (1)
  1. HYDROCODONE BITARTRATE + ACETAMINOPHEN [Suspect]

REACTIONS (4)
  - DRUG INTOLERANCE [None]
  - ABDOMINAL DISCOMFORT [None]
  - NAUSEA [None]
  - ABDOMINAL PAIN UPPER [None]
